FAERS Safety Report 12704510 (Version 2)
Quarter: 2017Q2

REPORT INFORMATION
  Report Type: Spontaneous
  Country: US (occurrence: US)
  Receive Date: 20160831
  Receipt Date: 20170627
  Transmission Date: 20170830
  Serious: Yes (Hospitalization, Other)
  Sender: FDA-Public Use
  Company Number: US-GLAXOSMITHKLINE-US2016GSK123372

PATIENT
  Sex: Female

DRUGS (4)
  1. IMITREX [Suspect]
     Active Substance: SUMATRIPTAN SUCCINATE
     Indication: MIGRAINE
     Dosage: UNK UNK, U
  2. IMITREX [Suspect]
     Active Substance: SUMATRIPTAN SUCCINATE
     Indication: MIGRAINE
     Dosage: UNK UNK, U
     Route: 042
  3. AMERGE [Suspect]
     Active Substance: NARATRIPTAN HYDROCHLORIDE
     Indication: MIGRAINE
     Dosage: UNK UNK, U
  4. EXCEDRIN MIGRAINE [Suspect]
     Active Substance: ACETAMINOPHEN\ASPIRIN\CAFFEINE
     Indication: MIGRAINE
     Dosage: UNK UNK, U

REACTIONS (22)
  - Allergic sinusitis [Unknown]
  - Impaired driving ability [Unknown]
  - Palpitations [Unknown]
  - Mobility decreased [Unknown]
  - Swelling [Unknown]
  - Anxiety [Unknown]
  - Condition aggravated [Unknown]
  - Headache [Unknown]
  - Pain [Unknown]
  - Drug hypersensitivity [Unknown]
  - Drug ineffective [Unknown]
  - Trismus [Unknown]
  - Malaise [Unknown]
  - Gastric operation [Unknown]
  - Muscle tightness [Unknown]
  - Fatigue [Unknown]
  - Crying [Unknown]
  - Dehydration [Unknown]
  - Dizziness [Unknown]
  - Migraine [Unknown]
  - Vomiting [Unknown]
  - Immunodeficiency [Unknown]
